FAERS Safety Report 25032020 (Version 1)
Quarter: 2025Q1

REPORT INFORMATION
  Report Type: Spontaneous
  Country: US (occurrence: None)
  Receive Date: 20250303
  Receipt Date: 20250303
  Transmission Date: 20250409
  Serious: Yes (Hospitalization)
  Sender: FDA-CTU
  Company Number: None

PATIENT
  Age: 68 Year
  Sex: Female
  Weight: 90 kg

DRUGS (12)
  1. CLINDAMYCIN [Suspect]
     Active Substance: CLINDAMYCIN
     Indication: Tooth abscess
     Dates: start: 20210929, end: 20211008
  2. AMOXICILLIN [Suspect]
     Active Substance: AMOXICILLIN
  3. METFORMIN HYDROCHLORIDE [Suspect]
     Active Substance: METFORMIN HYDROCHLORIDE
  4. LISINOPRIL [Suspect]
     Active Substance: LISINOPRIL
  5. INFLUENZA VIRUS VACCINE [Suspect]
     Active Substance: INFLUENZA VIRUS VACCINE
  6. JANUVIA [Concomitant]
     Active Substance: SITAGLIPTIN PHOSPHATE
  7. AMITRIPTYLINE [Concomitant]
     Active Substance: AMITRIPTYLINE
  8. FENOFIBRATE [Concomitant]
     Active Substance: FENOFIBRATE
  9. OMEPRAZOLE [Concomitant]
     Active Substance: OMEPRAZOLE
  10. ROSUVASTATIN [Concomitant]
     Active Substance: ROSUVASTATIN
  11. toprol XI [Concomitant]
  12. NM-6603 [Concomitant]
     Active Substance: NM-6603

REACTIONS (17)
  - Thirst [None]
  - Dry mouth [None]
  - Blood glucose increased [None]
  - Vision blurred [None]
  - Visual impairment [None]
  - Fatigue [None]
  - Decreased appetite [None]
  - Pollakiuria [None]
  - Gait disturbance [None]
  - Swelling face [None]
  - Pain in jaw [None]
  - Frequent bowel movements [None]
  - Pyrexia [None]
  - Dizziness [None]
  - Arthralgia [None]
  - Constipation [None]
  - Acute kidney injury [None]

NARRATIVE: CASE EVENT DATE: 20210929
